FAERS Safety Report 5894859-9 (Version None)
Quarter: 2008Q3

REPORT INFORMATION
  Report Type: 
  Country: None (occurrence: None)
  Receive Date: 20080924
  Receipt Date: 20080707
  Transmission Date: 20090109
  Serious: No
  Sender: FDA-Public Use
  Company Number: US-ASTRAZENECA-2008UW13557

PATIENT
  Age: 42 Year
  Sex: Female
  Weight: 70.8 kg

DRUGS (9)
  1. SEROQUEL [Suspect]
     Indication: PAIN
     Dosage: 200 MG
     Route: 048
     Dates: start: 20080401, end: 20080705
  2. SEROQUEL [Suspect]
     Indication: NERVOUSNESS
     Dosage: 200 MG
     Route: 048
     Dates: start: 20080401, end: 20080705
  3. SEROQUEL [Suspect]
     Indication: STOMACH DISCOMFORT
     Dosage: 200 MG
     Route: 048
     Dates: start: 20080401, end: 20080705
  4. ACIPHEX [Concomitant]
  5. REGLAN [Concomitant]
  6. NEURONTIN [Concomitant]
  7. HYOSCYAMINE [Concomitant]
  8. VICODIN [Concomitant]
  9. FIORICET [Concomitant]

REACTIONS (3)
  - DIARRHOEA [None]
  - THERAPEUTIC RESPONSE UNEXPECTED [None]
  - VOMITING [None]
